FAERS Safety Report 9210889 (Version 1)
Quarter: 2013Q2

REPORT INFORMATION
  Report Type: Report from Study
  Country: US (occurrence: US)
  Receive Date: 20130404
  Receipt Date: 20130404
  Transmission Date: 20140414
  Serious: Yes (Hospitalization)
  Sender: FDA-Public Use
  Company Number: US-ACTELION-A-NJ2013-80976

PATIENT
  Age: 77 Year
  Sex: Female

DRUGS (3)
  1. TRACLEER [Suspect]
     Indication: PULMONARY ARTERIAL HYPERTENSION
     Dosage: 125 MG, BID
     Route: 048
     Dates: start: 201007
  2. TRACLEER [Suspect]
     Dosage: 62.5 MG, BID
     Route: 048
     Dates: start: 201006, end: 201007
  3. SILDENAFIL [Concomitant]

REACTIONS (4)
  - Pleurisy [Unknown]
  - Chest pain [Unknown]
  - Pleural effusion [Unknown]
  - Dyspnoea [Unknown]
